FAERS Safety Report 4601643-2 (Version None)
Quarter: 2005Q1

REPORT INFORMATION
  Report Type: 
  Country: None (occurrence: None)
  Receive Date: 20050308
  Receipt Date: 20050301
  Transmission Date: 20050727
  Serious: Yes (Hospitalization)
  Sender: FDA-Public Use
  Company Number: CN-GLAXOSMITHKLINE-B0373888A

PATIENT
  Age: 35 Year
  Sex: Female

DRUGS (2)
  1. HEPTODIN [Suspect]
     Dosage: 100MG PER DAY
     Route: 048
  2. SILIBININ [Concomitant]
     Route: 065

REACTIONS (4)
  - ALANINE AMINOTRANSFERASE ABNORMAL [None]
  - DRUG INEFFECTIVE [None]
  - HBV DNA INCREASED [None]
  - HEPATITIS [None]
